FAERS Safety Report 15891826 (Version 2)
Quarter: 2019Q1

REPORT INFORMATION
  Report Type: Spontaneous
  Country: ES (occurrence: ES)
  Receive Date: 20190130
  Receipt Date: 20190130
  Transmission Date: 20190417
  Serious: Yes (Disabling)
  Sender: FDA-Public Use
  Company Number: PHHY2019ES014309

PATIENT
  Age: 54 Year
  Sex: Male

DRUGS (1)
  1. COLIRCUSI GENTADEXA [Suspect]
     Active Substance: DEXAMETHASONE SODIUM PHOSPHATE\GENTAMICIN SULFATE\TETRAHYDROZOLINE HYDROCHLORIDE
     Indication: CONJUNCTIVITIS
     Route: 047
     Dates: start: 20181227, end: 20190108

REACTIONS (3)
  - Superinfection [Recovered/Resolved with Sequelae]
  - Herpes ophthalmic [Recovered/Resolved with Sequelae]
  - Viral corneal ulcer [Recovered/Resolved with Sequelae]

NARRATIVE: CASE EVENT DATE: 20181227
